FAERS Safety Report 12681713 (Version 1)
Quarter: 2016Q3

REPORT INFORMATION
  Report Type: Spontaneous
  Country: IN (occurrence: IN)
  Receive Date: 20160824
  Receipt Date: 20160824
  Transmission Date: 20161109
  Serious: Yes (Other)
  Sender: FDA-Public Use
  Company Number: IN-BAUSCH-BL-2016-019772

PATIENT
  Age: 50 Year
  Sex: Female

DRUGS (7)
  1. LIGNOCAINE [Suspect]
     Active Substance: LIDOCAINE HYDROCHLORIDE
  2. LIGNOCAINE [Suspect]
     Active Substance: LIDOCAINE HYDROCHLORIDE
     Route: 023
  3. BUPIVACAINE. [Suspect]
     Active Substance: BUPIVACAINE
     Route: 023
  4. BUPIVACAINE. [Suspect]
     Active Substance: BUPIVACAINE
     Indication: ANAESTHESIA
  5. HYALURONIDASE [Suspect]
     Active Substance: HYALURONIDASE
     Indication: ANAESTHESIA
  6. LIGNOCAINE [Suspect]
     Active Substance: LIDOCAINE HYDROCHLORIDE
     Indication: ANAESTHESIA
     Route: 065
  7. HYALURONIDASE [Suspect]
     Active Substance: HYALURONIDASE
     Dosage: DOSE: 15 IU/0.1 ML
     Route: 023

REACTIONS (7)
  - Conjunctival oedema [Recovered/Resolved]
  - Induration [Unknown]
  - Urticaria [Recovered/Resolved]
  - Eyelid oedema [Recovered/Resolved]
  - Periorbital oedema [Recovering/Resolving]
  - Erythema [Recovered/Resolved]
  - Exophthalmos [Recovered/Resolved]
